FAERS Safety Report 18344339 (Version 1)
Quarter: 2020Q4

REPORT INFORMATION
  Report Type: Spontaneous
  Country: US (occurrence: US)
  Receive Date: 20201005
  Receipt Date: 20201005
  Transmission Date: 20210114
  Serious: No
  Sender: FDA-Public Use
  Company Number: US-JNJFOC-20200950816

PATIENT
  Sex: Female

DRUGS (1)
  1. XARELTO [Suspect]
     Active Substance: RIVAROXABAN
     Indication: THROMBOSIS
     Route: 048

REACTIONS (9)
  - Sinusitis [Unknown]
  - Adverse event [Unknown]
  - Dizziness [Recovered/Resolved]
  - Nasal congestion [Unknown]
  - Cough [Unknown]
  - Throat irritation [Unknown]
  - Feeling abnormal [Unknown]
  - Fatigue [Unknown]
  - Energy increased [Unknown]

NARRATIVE: CASE EVENT DATE: 20200926
